FAERS Safety Report 13891511 (Version 1)
Quarter: 2017Q3

REPORT INFORMATION
  Report Type: Other
  Country: FR (occurrence: FR)
  Receive Date: 20170822
  Receipt Date: 20170822
  Transmission Date: 20171127
  Serious: Yes (Hospitalization)
  Sender: FDA-Public Use
  Company Number: FR-HIKMA PHARMACEUTICALS CO. LTD-2017FR010902

PATIENT

DRUGS (5)
  1. INFLECTRA [Suspect]
     Active Substance: INFLIXIMAB-DYYB
     Dosage: UNK, EVERY 8 WEEKS
     Route: 042
  2. INFLECTRA [Suspect]
     Active Substance: INFLIXIMAB-DYYB
     Indication: CROHN^S DISEASE
     Dosage: 290,MG SINGLE
     Route: 042
     Dates: start: 20170410, end: 20170410
  3. METOJECT [Concomitant]
     Active Substance: METHOTREXATE SODIUM
  4. INFLECTRA [Suspect]
     Active Substance: INFLIXIMAB-DYYB
     Dosage: UNK, SINGLE
     Route: 042
     Dates: start: 20170529, end: 20170529
  5. INFLECTRA [Suspect]
     Active Substance: INFLIXIMAB-DYYB
     Dosage: UNK, SINGLE
     Route: 042
     Dates: start: 20170424, end: 20170424

REACTIONS (3)
  - Ischaemic stroke [Recovered/Resolved]
  - Meningitis aseptic [Recovered/Resolved]
  - Vasculitis cerebral [Recovered/Resolved]

NARRATIVE: CASE EVENT DATE: 201706
